FAERS Safety Report 8245874-1 (Version None)
Quarter: 2012Q1

REPORT INFORMATION
  Report Type: 
  Country: None (occurrence: None)
  Receive Date: 20120327
  Receipt Date: 20120313
  Transmission Date: 20120608
  Serious: Yes (Hospitalization, Other)
  Sender: FDA-Public Use
  Company Number: 2012P1003958

PATIENT
  Age: 61 Year
  Sex: Male
  Weight: 73.0291 kg

DRUGS (13)
  1. BOOST NUTRITIONAL FORMULA [Concomitant]
  2. AMBIEN [Concomitant]
  3. CLINDAMYCIN [Concomitant]
  4. FENTANYL-75 [Suspect]
     Indication: THROAT CANCER
     Dosage: 2 PATCHES;12D, 1 PATCHES, Q3D, TDER
     Route: 062
     Dates: start: 20110606, end: 20111208
  5. FENTANYL-75 [Suspect]
     Indication: THROAT CANCER
     Dosage: 2 PATCHES;12D, 1 PATCHES, Q3D, TDER
     Route: 062
     Dates: start: 20120107
  6. ACYCLOVIR [Concomitant]
  7. FENTANYL [Suspect]
     Dosage: Q3D, TDER
     Route: 062
  8. FENTANYL-100 [Suspect]
     Dosage: 1 PATCH;Q3D;TDER
     Route: 062
     Dates: start: 20111212, end: 20120107
  9. MEGACE ES [Concomitant]
  10. FENTANYL-50 [Suspect]
  11. PROZAC [Concomitant]
  12. FLUCONAZOLE [Concomitant]
  13. PRILOSEC [Concomitant]

REACTIONS (4)
  - INAPPROPRIATE ANTIDIURETIC HORMONE SECRETION [None]
  - STUPOR [None]
  - HEPATIC ENCEPHALOPATHY [None]
  - AMMONIA INCREASED [None]
